FAERS Safety Report 9431850 (Version 2)
Quarter: 2013Q3

REPORT INFORMATION
  Report Type: Report from Study
  Country: DE (occurrence: DE)
  Receive Date: 20130731
  Receipt Date: 20130812
  Transmission Date: 20140515
  Serious: Yes (Death, Other)
  Sender: FDA-Public Use
  Company Number: PHHY2013DE077881

PATIENT
  Sex: Female

DRUGS (5)
  1. CGP 57148B [Suspect]
     Indication: GASTROINTESTINAL STROMAL TUMOUR
     Dosage: 400 MG, DAILY
     Route: 048
     Dates: start: 20101201, end: 20111130
  2. VITAMIN B-12 [Concomitant]
     Indication: ANAEMIA VITAMIN B12 DEFICIENCY
     Dosage: 1000 , EVERY 4 WEEKS
     Route: 058
  3. BERLTHYROX [Concomitant]
     Indication: THYROIDECTOMY
     Dosage: 100 MG
     Route: 048
     Dates: start: 2007
  4. ASS [Concomitant]
     Indication: CORONARY ARTERY DISEASE
     Dosage: 100 MG, DAILY
     Route: 048
  5. REMINYL [Concomitant]
     Indication: DEMENTIA
     Dosage: 16 MG, DAILY
     Route: 048

REACTIONS (2)
  - Cachexia [Fatal]
  - Multi-organ failure [Fatal]
